FAERS Safety Report 24537642 (Version 1)
Quarter: 2024Q4

REPORT INFORMATION
  Report Type: Spontaneous
  Country: US (occurrence: US)
  Receive Date: 20241023
  Receipt Date: 20241023
  Transmission Date: 20250115
  Serious: Yes (Other)
  Sender: MERCK
  Company Number: US-009507513-2410USA006509

PATIENT
  Age: 69 Year
  Sex: Female

DRUGS (6)
  1. KEYTRUDA [Suspect]
     Active Substance: PEMBROLIZUMAB
     Indication: Nasal sinus cancer
     Dosage: 200 MILLIGRAM, Q3W
  2. KEYTRUDA [Suspect]
     Active Substance: PEMBROLIZUMAB
     Indication: Squamous cell carcinoma of head and neck
  3. ALPELISIB [Suspect]
     Active Substance: ALPELISIB
     Indication: Nasal sinus cancer
     Dosage: 300 MILLIGRAM, QD
  4. ALPELISIB [Suspect]
     Active Substance: ALPELISIB
     Indication: Squamous cell carcinoma of head and neck
  5. CAPECITABINE [Concomitant]
     Active Substance: CAPECITABINE
     Indication: Nasal sinus cancer
     Dosage: 1000 MILLIGRAM/SQ. METER, BID (ON DAYS 1-14)
  6. CAPECITABINE [Concomitant]
     Active Substance: CAPECITABINE
     Indication: Squamous cell carcinoma of head and neck

REACTIONS (2)
  - Immune-mediated hepatitis [Not Recovered/Not Resolved]
  - Product use issue [Unknown]
